FAERS Safety Report 10623610 (Version 1)
Quarter: 2014Q4

REPORT INFORMATION
  Report Type: Spontaneous
  Country: US (occurrence: US)
  Receive Date: 20141203
  Receipt Date: 20141203
  Transmission Date: 20150529
  Serious: Yes (Disabling)
  Sender: FDA-Public Use
  Company Number: PHHY2014US154829

PATIENT
  Age: 39 Year
  Sex: Male

DRUGS (1)
  1. ISONIAZID. [Suspect]
     Active Substance: ISONIAZID
     Indication: TUBERCULOSIS
     Route: 065

REACTIONS (14)
  - Primary progressive multiple sclerosis [Unknown]
  - Movement disorder [Unknown]
  - Muscle spasms [Unknown]
  - Nystagmus [Unknown]
  - Tremor [Unknown]
  - Nervous system disorder [Unknown]
  - Fatigue [Unknown]
  - Temperature intolerance [Unknown]
  - Clonus [Unknown]
  - Muscular weakness [Unknown]
  - Dysphagia [Unknown]
  - Resting tremor [Unknown]
  - Erectile dysfunction [Unknown]
  - Urinary incontinence [Unknown]

NARRATIVE: CASE EVENT DATE: 2008
